FAERS Safety Report 6728226-2 (Version None)
Quarter: 2010Q2

REPORT INFORMATION
  Report Type: 
  Country: None (occurrence: None)
  Receive Date: 20100517
  Receipt Date: 20100503
  Transmission Date: 20101027
  Serious: Yes (Other)
  Sender: FDA-Public Use
  Company Number: CA-GENENTECH-301671

PATIENT
  Sex: Female

DRUGS (2)
  1. XOLAIR [Suspect]
     Indication: ASTHMA
     Dosage: 375 MG, Q2W
     Route: 058
     Dates: start: 20090126
  2. XOLAIR [Suspect]
     Dosage: UNK
     Dates: start: 20100419

REACTIONS (5)
  - GENERALISED ERYTHEMA [None]
  - JOINT SWELLING [None]
  - PAIN [None]
  - RASH PUSTULAR [None]
  - SKIN NECROSIS [None]
